FAERS Safety Report 7004069-X (Version None)
Quarter: 2010Q3

REPORT INFORMATION
  Report Type: 
  Country: None (occurrence: None)
  Receive Date: 20100920
  Receipt Date: 20100122
  Transmission Date: 20110219
  Serious: No
  Sender: FDA-Public Use
  Company Number: US-WYE-H13138310

PATIENT
  Age: 81 Year
  Sex: Female

DRUGS (7)
  1. PRISTIQ [Suspect]
     Indication: DEPRESSION
     Route: 048
     Dates: start: 20090901
  2. PRILOSEC [Concomitant]
  3. DILTIAZEM [Concomitant]
  4. LABETALOL HCL [Concomitant]
  5. CLONAZEPAM [Concomitant]
  6. LEVOTHYROXINE SODIUM [Concomitant]
  7. SINGULAIR [Concomitant]

REACTIONS (5)
  - CONDITION AGGRAVATED [None]
  - CONFUSIONAL AROUSAL [None]
  - DEPRESSION [None]
  - DRUG INEFFECTIVE [None]
  - NIGHTMARE [None]
